FAERS Safety Report 7488107-6 (Version None)
Quarter: 2011Q2

REPORT INFORMATION
  Report Type: 
  Country: None (occurrence: None)
  Receive Date: 20110518
  Receipt Date: 20110512
  Transmission Date: 20111010
  Serious: Yes (Other)
  Sender: FDA-Public Use
  Company Number: BR-ROCHE-762558

PATIENT
  Sex: Female
  Weight: 75 kg

DRUGS (14)
  1. TOCILIZUMAB [Suspect]
     Route: 042
  2. OSCAL D [Concomitant]
  3. CRESTOR [Concomitant]
  4. FOLIC ACID [Concomitant]
  5. METHOTREXATE [Concomitant]
  6. AMLODIPINE BESYLATE [Concomitant]
  7. DIPROSPAN [Concomitant]
  8. FELDENE [Concomitant]
  9. OMEPRAZOLE [Concomitant]
  10. DEFLAZACORT [Concomitant]
  11. LOSARTAN POTASSIUM [Concomitant]
  12. METFORMIN HCL [Concomitant]
  13. TOCILIZUMAB [Suspect]
     Indication: RHEUMATOID ARTHRITIS
     Dosage: INFUSION,UNSPECIFIED DOSE
     Route: 042
     Dates: start: 20110111, end: 20110501
  14. HYDROCHLOROTHIAZIDE [Concomitant]

REACTIONS (8)
  - URINARY TRACT INFECTION [None]
  - ABASIA [None]
  - ARTHRITIS [None]
  - ASTHENIA [None]
  - DRUG INEFFECTIVE [None]
  - PAIN [None]
  - SOMNOLENCE [None]
  - OEDEMA PERIPHERAL [None]
